FAERS Safety Report 9805964 (Version 2)
Quarter: 2014Q1

REPORT INFORMATION
  Report Type: Spontaneous
  Country: NO (occurrence: NO)
  Receive Date: 20140109
  Receipt Date: 20140111
  Transmission Date: 20141002
  Serious: Yes (Death)
  Sender: FDA-Public Use
  Company Number: NO-ASTRAZENECA-2014SE01188

PATIENT
  Age: 45 Year
  Sex: Male

DRUGS (5)
  1. SEROQUEL [Suspect]
     Route: 048
  2. SEROQUEL [Suspect]
     Route: 048
  3. BENZODIAZEPINES [Concomitant]
  4. XANOR [Concomitant]
  5. IMOVANE [Concomitant]
     Route: 048

REACTIONS (1)
  - Completed suicide [Fatal]
